FAERS Safety Report 10503760 (Version 1)
Quarter: 2014Q4

REPORT INFORMATION
  Report Type: Spontaneous
  Country: US (occurrence: None)
  Receive Date: 20141007
  Receipt Date: 20141007
  Transmission Date: 20150528
  Serious: Yes (Other)
  Sender: FDA-Public Use
  Company Number: None

PATIENT
  Age: 15 Year
  Sex: Male
  Weight: 58.51 kg

DRUGS (4)
  1. PROAIR HFA [Suspect]
     Active Substance: ALBUTEROL SULFATE
     Dosage: 2-4 INHALATIONS
     Route: 055
     Dates: start: 20140731, end: 20140920
  2. PROAIR HFA [Suspect]
     Active Substance: ALBUTEROL SULFATE
     Indication: ASTHMA EXERCISE INDUCED
     Dosage: 2-4 INHALATIONS
     Route: 055
     Dates: start: 20140701, end: 20140920
  3. PROAIR HFA [Suspect]
     Active Substance: ALBUTEROL SULFATE
     Indication: ASTHMA EXERCISE INDUCED
     Dosage: 2-4 INHALATIONS
     Route: 055
     Dates: start: 20140731, end: 20140920
  4. PROAIR HFA [Suspect]
     Active Substance: ALBUTEROL SULFATE
     Indication: PROPHYLAXIS
     Dosage: 2-4 INHALATIONS
     Route: 055
     Dates: start: 20140701, end: 20140920

REACTIONS (5)
  - Self-medication [None]
  - Cough [None]
  - Product packaging quantity issue [None]
  - Dyspnoea [None]
  - Device malfunction [None]

NARRATIVE: CASE EVENT DATE: 20140920
